FAERS Safety Report 7723949-0 (Version None)
Quarter: 2011Q3

REPORT INFORMATION
  Report Type: 
  Country: None (occurrence: None)
  Receive Date: 20110901
  Receipt Date: 20110818
  Transmission Date: 20111222
  Serious: Yes (Hospitalization)
  Sender: FDA-Public Use
  Company Number: US-ELI_LILLY_AND_COMPANY-US201008006798

PATIENT
  Sex: Female
  Weight: 42.4 kg

DRUGS (2)
  1. FORTEO [Suspect]
     Dosage: 20 UG, QD
     Route: 058
     Dates: start: 20091215
  2. FORTEO [Suspect]
     Indication: OSTEOPOROSIS
     Dosage: 20 UG, QD
     Route: 058
     Dates: start: 20090717, end: 20090718

REACTIONS (7)
  - PARATHYROIDECTOMY [None]
  - DECREASED APPETITE [None]
  - BLOOD CALCIUM ABNORMAL [None]
  - WEIGHT DECREASED [None]
  - BLOOD CALCIUM INCREASED [None]
  - DYSPNOEA [None]
  - BRONCHITIS [None]
